FAERS Safety Report 8156246-2 (Version None)
Quarter: 2012Q1

REPORT INFORMATION
  Report Type: 
  Country: None (occurrence: None)
  Receive Date: 20120222
  Receipt Date: 20120214
  Transmission Date: 20120608
  Serious: Yes (Other)
  Sender: FDA-Public Use
  Company Number: JP-EISAI INC-E2090-01924-SPO-JP

PATIENT
  Sex: Male

DRUGS (9)
  1. SELEGILINE HCL [Concomitant]
     Indication: PARKINSON'S DISEASE
     Route: 048
     Dates: start: 20050727
  2. MADOPAR [Concomitant]
     Indication: PARKINSON'S DISEASE
     Route: 048
     Dates: start: 20070407
  3. CABERGOLINE [Suspect]
     Indication: PARKINSON'S DISEASE
     Route: 048
     Dates: start: 20070514
  4. CLONAZEPAM [Concomitant]
     Route: 048
     Dates: start: 20071117
  5. PLAVIX [Concomitant]
     Route: 048
     Dates: start: 20090602
  6. MAGNESIUM SULFATE [Concomitant]
     Route: 048
     Dates: start: 20100201
  7. ZONISAMIDE [Suspect]
     Indication: PARKINSON'S DISEASE
     Route: 048
     Dates: start: 20100804
  8. LOXONIN [Concomitant]
     Route: 048
     Dates: start: 20081021
  9. SYMMETREL [Concomitant]
     Indication: PARKINSON'S DISEASE
     Route: 048
     Dates: start: 20040817

REACTIONS (2)
  - CARDIAC VALVE DISEASE [None]
  - CEREBRAL ARTERY EMBOLISM [None]
